FAERS Safety Report 5237530-9 (Version None)
Quarter: 2007Q1

REPORT INFORMATION
  Report Type: 
  Country: None (occurrence: None)
  Receive Date: 20070213
  Receipt Date: 20070201
  Transmission Date: 20070707
  Serious: Yes (Other)
  Sender: FDA-Public Use
  Company Number: PL-PFIZER INC-2007003586

PATIENT
  Sex: Male
  Weight: 85 kg

DRUGS (1)
  1. UNASYN [Suspect]
     Indication: POSTOPERATIVE WOUND INFECTION
     Route: 042
     Dates: start: 20070108, end: 20070108

REACTIONS (4)
  - APNOEA [None]
  - BRADYCARDIA [None]
  - CHILLS [None]
  - LOSS OF CONSCIOUSNESS [None]
